FAERS Safety Report 14350575 (Version 2)
Quarter: 2018Q3

REPORT INFORMATION
  Report Type: Spontaneous
  Country: US (occurrence: US)
  Receive Date: 20180104
  Receipt Date: 20180824
  Transmission Date: 20181010
  Serious: No
  Sender: FDA-Public Use
  Company Number: US-PFIZER INC-2018001935

PATIENT
  Age: 49 Year
  Sex: Male
  Weight: 125 kg

DRUGS (1)
  1. SUTENT [Suspect]
     Active Substance: SUNITINIB MALATE
     Indication: GASTROINTESTINAL STROMAL TUMOUR
     Dosage: 50 MG, CYCLIC (DAYS 1?28 Q42 DAYS)
     Route: 048
     Dates: start: 20171220, end: 201805

REACTIONS (6)
  - Abdominal distension [Unknown]
  - Thyroid function test abnormal [Unknown]
  - Joint swelling [Unknown]
  - Nausea [Unknown]
  - Fatigue [Unknown]
  - Peripheral swelling [Unknown]
